FAERS Safety Report 23688952 (Version 3)
Quarter: 2024Q3

REPORT INFORMATION
  Report Type: Spontaneous
  Country: US (occurrence: US)
  Receive Date: 20240329
  Receipt Date: 20240919
  Transmission Date: 20241017
  Serious: No
  Sender: MYLAN
  Company Number: US-MYLANLABS-2024M1028693

PATIENT
  Age: 68 Year
  Sex: Female

DRUGS (1)
  1. LIDOCAINE PATCH [Suspect]
     Active Substance: LIDOCAINE
     Indication: Back pain
     Dosage: UNK, (30 PATCHES)
     Route: 003
     Dates: start: 20240324

REACTIONS (4)
  - Device difficult to use [Unknown]
  - Off label use [Unknown]
  - Product adhesion issue [Unknown]
  - Product quality issue [Unknown]

NARRATIVE: CASE EVENT DATE: 20240324
